FAERS Safety Report 6706319-3 (Version None)
Quarter: 2010Q2

REPORT INFORMATION
  Report Type: 
  Country: None (occurrence: None)
  Receive Date: 20100423
  Receipt Date: 20091214
  Transmission Date: 20101027
  Serious: No
  Sender: FDA-Public Use
  Company Number: ALL1-2009-04044

PATIENT
  Age: 20 Year
  Sex: Male
  Weight: 59.4 kg

DRUGS (3)
  1. VYVANSE [Suspect]
     Indication: ATTENTION DEFICIT/HYPERACTIVITY DISORDER
     Dosage: 70 MG, 1X/DAY:QD, ORAL, 70MG, 1X/DAY:QD, ORAL, TWO 70MG. CAPSULES FOR ATOAL OF 140MG. IN AFTERN
     Route: 048
     Dates: start: 20091211, end: 20091212
  2. VYVANSE [Suspect]
     Indication: ATTENTION DEFICIT/HYPERACTIVITY DISORDER
     Dosage: 70 MG, 1X/DAY:QD, ORAL, 70MG, 1X/DAY:QD, ORAL, TWO 70MG. CAPSULES FOR ATOAL OF 140MG. IN AFTERN
     Route: 048
     Dates: start: 20091213, end: 20091213
  3. VYVANSE [Suspect]
     Indication: ATTENTION DEFICIT/HYPERACTIVITY DISORDER
     Dosage: 70 MG, 1X/DAY:QD, ORAL, 70MG, 1X/DAY:QD, ORAL, TWO 70MG. CAPSULES FOR ATOAL OF 140MG. IN AFTERN
     Route: 048
     Dates: start: 20091213, end: 20091213

REACTIONS (16)
  - ANXIETY [None]
  - CHILLS [None]
  - EYELID FUNCTION DISORDER [None]
  - FEAR [None]
  - HALLUCINATION [None]
  - INSOMNIA [None]
  - INTENTIONAL DRUG MISUSE [None]
  - INTENTIONAL OVERDOSE [None]
  - PALPITATIONS [None]
  - PANIC ATTACK [None]
  - PARANOIA [None]
  - PYREXIA [None]
  - RESTLESSNESS [None]
  - TINNITUS [None]
  - TREMOR [None]
  - VISION BLURRED [None]
